FAERS Safety Report 24315372 (Version 2)
Quarter: 2024Q3

REPORT INFORMATION
  Report Type: Spontaneous
  Country: US (occurrence: US)
  Receive Date: 20240913
  Receipt Date: 20240927
  Transmission Date: 20241016
  Serious: No
  Sender: JOHNSON AND JOHNSON
  Company Number: US-JNJFOC-20240915293

PATIENT
  Age: 67 Year
  Sex: Male

DRUGS (4)
  1. IMODIUM [Suspect]
     Active Substance: LOPERAMIDE HYDROCHLORIDE
     Indication: Diarrhoea
     Route: 065
     Dates: start: 202408, end: 2024
  2. TYVASO DPI [Concomitant]
     Active Substance: TREPROSTINIL
     Indication: Pulmonary arterial hypertension
     Route: 065
     Dates: start: 202408
  3. TYVASO DPI [Concomitant]
     Active Substance: TREPROSTINIL
     Route: 065
     Dates: start: 202408
  4. TYVASO DPI [Concomitant]
     Active Substance: TREPROSTINIL
     Route: 065
     Dates: start: 202408

REACTIONS (1)
  - Therapeutic product effect decreased [Unknown]
